FAERS Safety Report 14885775 (Version 2)
Quarter: 2021Q2

REPORT INFORMATION
  Report Type: Other
  Country: US (occurrence: US)
  Receive Date: 20180512
  Receipt Date: 20210405
  Transmission Date: 20210716
  Serious: Yes (Other)
  Sender: FDA-Public Use
  Company Number: US-ROCHE-2116831

PATIENT

DRUGS (7)
  1. NIVOLUMAB [Suspect]
     Active Substance: NIVOLUMAB
     Indication: NEOPLASM MALIGNANT
     Route: 065
  2. ATEZOLIZUMAB. [Suspect]
     Active Substance: ATEZOLIZUMAB
     Indication: NEOPLASM MALIGNANT
     Route: 065
  3. PEMBROLIZUMAB. [Suspect]
     Active Substance: PEMBROLIZUMAB
     Indication: NEOPLASM MALIGNANT
     Route: 065
  4. IPILIMUMAB [Suspect]
     Active Substance: IPILIMUMAB
     Indication: NEOPLASM MALIGNANT
     Route: 065
  5. DURVALUMAB. [Suspect]
     Active Substance: DURVALUMAB
     Indication: NEOPLASM MALIGNANT
     Route: 065
  6. TREMELIMUMAB. [Suspect]
     Active Substance: TREMELIMUMAB
     Indication: NEOPLASM MALIGNANT
     Route: 065
  7. AVELUMAB [Suspect]
     Active Substance: AVELUMAB
     Indication: NEOPLASM MALIGNANT
     Route: 065

REACTIONS (9)
  - Cardiovascular disorder [Unknown]
  - Adrenal disorder [Unknown]
  - Myocarditis [Unknown]
  - Hypothalamo-pituitary disorder [Unknown]
  - Colitis [Unknown]
  - Hepatitis [Unknown]
  - Nervous system disorder [Unknown]
  - Pneumonitis [Unknown]
  - Dermatitis [Unknown]
